FAERS Safety Report 6504017-2 (Version None)
Quarter: 2009Q4

REPORT INFORMATION
  Report Type: 
  Country: None (occurrence: None)
  Receive Date: 20091216
  Receipt Date: 20091216
  Transmission Date: 20100525
  Serious: Yes (Life-Threatening, Hospitalization)
  Sender: FDA-Public Use
  Company Number: None

PATIENT
  Age: 72 Year
  Sex: Female
  Weight: 63.5036 kg

DRUGS (1)
  1. REMICADE [Suspect]
     Indication: RHEUMATOID ARTHRITIS
     Dosage: 300MG Q 8 WEEKS IV
     Route: 042
     Dates: start: 20090603, end: 20090701

REACTIONS (2)
  - ARTHRITIS BACTERIAL [None]
  - MYCOBACTERIUM AVIUM COMPLEX INFECTION [None]
